FAERS Safety Report 14716367 (Version 1)
Quarter: 2018Q2

REPORT INFORMATION
  Report Type: Spontaneous
  Country: AU (occurrence: AU)
  Receive Date: 20180404
  Receipt Date: 20180404
  Transmission Date: 20180711
  Serious: Yes (Life-Threatening)
  Sender: FDA-Public Use
  Company Number: PHHY2018AU058280

PATIENT
  Sex: Male

DRUGS (8)
  1. PREDNISONE. [Suspect]
     Active Substance: PREDNISONE
     Indication: CHRONIC GRAFT VERSUS HOST DISEASE
     Route: 065
  2. AZITHROMYCIN ANHYDROUS. [Suspect]
     Active Substance: AZITHROMYCIN ANHYDROUS
     Indication: IMMUNOSUPPRESSION
  3. TACROLIMUS. [Suspect]
     Active Substance: TACROLIMUS
     Indication: IMMUNOSUPPRESSION
  4. PREDNISONE. [Suspect]
     Active Substance: PREDNISONE
     Indication: IMMUNOSUPPRESSION
  5. MONTELUKAST SODIUM. [Suspect]
     Active Substance: MONTELUKAST SODIUM
     Indication: CHRONIC GRAFT VERSUS HOST DISEASE
     Route: 065
  6. MONTELUKAST SODIUM. [Suspect]
     Active Substance: MONTELUKAST SODIUM
     Indication: IMMUNOSUPPRESSION
  7. AZITHROMYCIN ANHYDROUS. [Suspect]
     Active Substance: AZITHROMYCIN ANHYDROUS
     Indication: CHRONIC GRAFT VERSUS HOST DISEASE
     Route: 065
  8. TACROLIMUS. [Suspect]
     Active Substance: TACROLIMUS
     Indication: CHRONIC GRAFT VERSUS HOST DISEASE
     Route: 065

REACTIONS (6)
  - Condition aggravated [Unknown]
  - Infection [Unknown]
  - Respiratory disorder [Unknown]
  - Fungal infection [Unknown]
  - Immunosuppression [Unknown]
  - Graft versus host disease in lung [Unknown]
